FAERS Safety Report 7945489-6 (Version None)
Quarter: 2011Q4

REPORT INFORMATION
  Report Type: 
  Country: None (occurrence: None)
  Receive Date: 20111125
  Receipt Date: 20111115
  Transmission Date: 20120403
  Serious: Yes (Life-Threatening, Hospitalization, Other)
  Sender: FDA-Public Use
  Company Number: VAL_00652_2011

PATIENT
  Age: 24 Year
  Sex: Female

DRUGS (2)
  1. CARBAMAZEPINE [Suspect]
     Indication: EPILEPSY
     Dosage: (280 CONTROLLED-RELEASE TABLETS (200 MG)), (DF)
  2. OXAPROZIN [Suspect]
     Indication: PRODUCT USED FOR UNKNOWN INDICATION
     Dosage: (30 TABLETS (600 MG))

REACTIONS (8)
  - VOMITING [None]
  - HAEMODIALYSIS [None]
  - SINUS TACHYCARDIA [None]
  - DIZZINESS [None]
  - RENAL FAILURE ACUTE [None]
  - NAUSEA [None]
  - LACERATION [None]
  - SOMNOLENCE [None]
